FAERS Safety Report 6130844-X (Version None)
Quarter: 2009Q1

REPORT INFORMATION
  Report Type: 
  Country: None (occurrence: None)
  Receive Date: 20090325
  Receipt Date: 20090317
  Transmission Date: 20090719
  Serious: Yes (Hospitalization, Other)
  Sender: FDA-Public Use
  Company Number: US-PFIZER INC-2004220558US

PATIENT
  Sex: Female
  Weight: 79 kg

DRUGS (30)
  1. PROVERA [Suspect]
     Indication: HORMONE REPLACEMENT THERAPY
     Dosage: UNK
     Route: 065
     Dates: end: 19970115
  2. PROVERA [Suspect]
     Indication: HOT FLUSH
  3. PROVERA [Suspect]
     Indication: INSOMNIA
  4. PROVERA [Suspect]
     Indication: DEPRESSION
  5. PROVELLA-14 [Suspect]
     Indication: HORMONE REPLACEMENT THERAPY
     Route: 065
     Dates: start: 19820101, end: 19970101
  6. KLIOGEST ^NOVO INDUSTRI^ [Suspect]
     Indication: HORMONE REPLACEMENT THERAPY
     Route: 065
     Dates: start: 20000101
  7. PREMPRO [Suspect]
     Indication: HOT FLUSH
     Dosage: UNK
     Dates: start: 19970115, end: 20000103
  8. PREMPRO [Suspect]
     Indication: INSOMNIA
  9. PREMPRO [Suspect]
     Indication: DEPRESSION
  10. PREMARIN [Suspect]
     Indication: HOT FLUSH
     Dosage: UNK
     Dates: start: 19820504, end: 19970206
  11. PREMARIN [Suspect]
     Indication: INSOMNIA
  12. PREMARIN [Suspect]
     Indication: DEPRESSION
  13. ESTRADERM [Suspect]
     Indication: HOT FLUSH
     Dosage: 0.05 MG, UNK
     Dates: start: 19890428, end: 19890727
  14. ESTRADERM [Suspect]
     Indication: INSOMNIA
  15. ESTRADERM [Suspect]
     Indication: DEPRESSION
  16. COMBIPATCH [Suspect]
     Indication: HOT FLUSH
     Dosage: UNK
     Dates: start: 20000103, end: 20000203
  17. COMBIPATCH [Suspect]
     Indication: INSOMNIA
  18. COMBIPATCH [Suspect]
     Indication: DEPRESSION
  19. SIMVASTATIN [Concomitant]
     Indication: HYPERCHOLESTEROLAEMIA
     Route: 065
     Dates: start: 20010601
  20. ALENDRONATE SODIUM [Concomitant]
     Indication: OSTEOPOROSIS PROPHYLAXIS
     Dosage: DAILY
     Route: 065
     Dates: start: 20000701
  21. ALENDRONATE SODIUM [Concomitant]
     Dosage: ONCE A WEEK
     Route: 065
  22. FLUOXETINE [Concomitant]
     Indication: DEPRESSION
     Dosage: UNK
     Route: 065
     Dates: start: 19890607
  23. ATORVASTATIN CALCIUM [Concomitant]
     Indication: HYPERCHOLESTEROLAEMIA
     Route: 065
     Dates: start: 20000725, end: 20010601
  24. TRIAMTERENE AND HYDROCHLOROTHIAZIDE [Concomitant]
     Indication: ILL-DEFINED DISORDER
     Route: 065
     Dates: start: 20010507
  25. CEPHALEXIN MONOHYDRATE [Concomitant]
     Indication: ILL-DEFINED DISORDER
     Route: 065
     Dates: start: 20011120, end: 20011101
  26. LORAZEPAM [Concomitant]
     Indication: ANXIETY
     Route: 065
     Dates: start: 20020118, end: 20020101
  27. ACYCLOVIR [Concomitant]
     Indication: IMMUNOSUPPRESSION
     Route: 065
     Dates: start: 20020605, end: 20020101
  28. TRIAMTERENE AND HYDROCHLOROTHIAZIDE [Concomitant]
     Route: 065
     Dates: start: 19910625, end: 20010101
  29. MAXZIDE [Concomitant]
     Indication: OEDEMA PERIPHERAL
     Dosage: UNK
     Dates: start: 19910625, end: 20001223
  30. MULTI-VITAMINS [Concomitant]
     Indication: SUPPLEMENTATION THERAPY
     Dosage: UNK
     Dates: start: 19800101

REACTIONS (1)
  - BREAST CANCER FEMALE [None]
